FAERS Safety Report 24062610 (Version 2)
Quarter: 2024Q3

REPORT INFORMATION
  Report Type: Spontaneous
  Country: JP (occurrence: JP)
  Receive Date: 20240708
  Receipt Date: 20240802
  Transmission Date: 20241016
  Serious: Yes (Disabling)
  Sender: BOEHRINGER INGELHEIM
  Company Number: JP-NBI-2024-BI-038031

PATIENT
  Age: 83 Year
  Sex: Female
  Weight: 42 kg

DRUGS (1)
  1. MIRAPEX [Suspect]
     Active Substance: PRAMIPEXOLE DIHYDROCHLORIDE
     Indication: Parkinson^s disease
     Dosage: DAILY DOSE: 2.25 MILLIGRAM(S), FORM STRENGTH: 2.25 MILLIGRAM
     Route: 048
     Dates: end: 202407

REACTIONS (3)
  - Cerebral haemorrhage [Recovered/Resolved with Sequelae]
  - Fall [Unknown]
  - Dysphagia [Unknown]

NARRATIVE: CASE EVENT DATE: 20240328
